FAERS Safety Report 5287374-7 (Version None)
Quarter: 2007Q1

REPORT INFORMATION
  Report Type: 
  Country: None (occurrence: None)
  Receive Date: 20070116
  Receipt Date: 20061106
  Transmission Date: 20070707
  Serious: No
  Sender: FDA-Public Use
  Company Number: 2006SP003936

PATIENT
  Age: 55 Year
  Sex: Female
  Weight: 94.3482 kg

DRUGS (4)
  1. LUNESTA [Suspect]
     Indication: INSOMNIA
     Dosage: ORAL
     Route: 048
     Dates: end: 20060919
  2. SIMPLY SLEEP (50 MG) [Suspect]
     Indication: INSOMNIA
     Dosage: 50 MG;BID
     Dates: start: 20060919, end: 20060921
  3. TOPROL-XL [Concomitant]
  4. SIMVASTATIN [Concomitant]

REACTIONS (3)
  - DRUG INEFFECTIVE [None]
  - HEADACHE [None]
  - INSOMNIA [None]
